FAERS Safety Report 16328625 (Version 1)
Quarter: 2019Q2

REPORT INFORMATION
  Report Type: Spontaneous
  Country: PL (occurrence: PL)
  Receive Date: 20190518
  Receipt Date: 20190518
  Transmission Date: 20190711
  Serious: Yes (Death, Life-Threatening, Disabling, Other)
  Sender: FDA-Public Use
  Company Number: PHHY2019PL112338

PATIENT
  Age: 67 Year
  Sex: Female
  Weight: 70 kg

DRUGS (38)
  1. IMIPENEM/CILASTATIN KABI [Suspect]
     Active Substance: CILASTATIN SODIUM\IMIPENEM
     Indication: PRODUCT USED FOR UNKNOWN INDICATION
     Dosage: 4 G, QD
     Route: 042
  2. LEVONOR [Concomitant]
     Dosage: 1.4 MG/H, UNK
     Route: 042
     Dates: start: 20181124, end: 20181125
  3. METOCARD ZK [Concomitant]
     Active Substance: METOPROLOL TARTRATE
     Indication: PRODUCT USED FOR UNKNOWN INDICATION
     Dosage: 95 MG, UNK
     Route: 048
  4. CORDARONE [Concomitant]
     Active Substance: AMIODARONE HYDROCHLORIDE
     Indication: PRODUCT USED FOR UNKNOWN INDICATION
     Dosage: 900 MG, QD
     Route: 041
  5. MEMOTROPIL [Concomitant]
     Active Substance: PIRACETAM
     Indication: PRODUCT USED FOR UNKNOWN INDICATION
     Dosage: 2.4 G, QD
     Route: 042
     Dates: start: 20181024, end: 20181115
  6. MEMOTROPIL [Concomitant]
     Active Substance: PIRACETAM
     Dosage: 2.4 G, QD
     Route: 042
     Dates: start: 20181116, end: 20181125
  7. OXYNORM [Concomitant]
     Active Substance: OXYCODONE HYDROCHLORIDE
     Indication: PRODUCT USED FOR UNKNOWN INDICATION
     Dosage: 2 MG/H, UNK
     Route: 042
     Dates: start: 20181012, end: 20181018
  8. HEPA-MERZ [Concomitant]
     Indication: PRODUCT USED FOR UNKNOWN INDICATION
     Dosage: 20 MG, QD
     Route: 041
  9. COSMOFER [Concomitant]
     Active Substance: IRON DEXTRAN
     Indication: PRODUCT USED FOR UNKNOWN INDICATION
     Dosage: 1 G/ML, UNK (/100)
     Route: 042
  10. CLEXANE [Concomitant]
     Active Substance: ENOXAPARIN SODIUM
     Indication: PRODUCT USED FOR UNKNOWN INDICATION
     Dosage: UNK (NO INFORMATION ON DOSAGE)
     Route: 042
  11. KWETAPLEX [Concomitant]
     Active Substance: QUETIAPINE FUMARATE
     Indication: PRODUCT USED FOR UNKNOWN INDICATION
     Dosage: 50 MG, QD
     Route: 048
  12. CORHYDRON [Concomitant]
     Indication: PRODUCT USED FOR UNKNOWN INDICATION
     Dosage: 400 MG, QD
     Route: 042
  13. FINOSPIR [Concomitant]
     Indication: PRODUCT USED FOR UNKNOWN INDICATION
     Dosage: 50 MG, QD
     Route: 048
  14. PARACETAMOL [Concomitant]
     Active Substance: ACETAMINOPHEN
     Indication: PRODUCT USED FOR UNKNOWN INDICATION
     Dosage: 1 G, QD
     Route: 042
  15. OXYNORM [Concomitant]
     Active Substance: OXYCODONE HYDROCHLORIDE
     Dosage: 2 MG/H, UNK
     Route: 042
     Dates: start: 20181115, end: 20181120
  16. VANCOMYCIN [Suspect]
     Active Substance: VANCOMYCIN
     Dosage: 1 G, QD
     Route: 048
     Dates: start: 20181028, end: 20181109
  17. LEVONOR [Concomitant]
     Dosage: 1.7 MG/H, UNK
     Route: 042
     Dates: start: 20181120, end: 20181123
  18. MORPHINE [Suspect]
     Active Substance: MORPHINE
     Indication: PRODUCT USED FOR UNKNOWN INDICATION
     Dosage: 145 MG, QD
     Route: 042
  19. LEVONOR [Concomitant]
     Dosage: 4 MG/H, UNK
     Route: 042
     Dates: start: 20181116, end: 20181117
  20. FUROSEMID [Concomitant]
     Active Substance: FUROSEMIDE
     Dosage: 40 MG, QD
     Route: 042
  21. SODIUM BICARBONATE. [Concomitant]
     Active Substance: SODIUM BICARBONATE
     Indication: PRODUCT USED FOR UNKNOWN INDICATION
     Dosage: 100 MG, UNK
     Route: 042
  22. LEVONOR [Concomitant]
     Indication: PRODUCT USED FOR UNKNOWN INDICATION
     Dosage: 1.4 MG/H, UNK
     Route: 042
     Dates: start: 20181012, end: 20181016
  23. FUROSEMID [Concomitant]
     Active Substance: FUROSEMIDE
     Indication: PRODUCT USED FOR UNKNOWN INDICATION
     Dosage: 5 MG/H, UNK
     Route: 042
  24. VITACON [Concomitant]
     Indication: PRODUCT USED FOR UNKNOWN INDICATION
     Dosage: 2 G/ML, UNK (/200)
     Route: 042
  25. MEROPENEM. [Concomitant]
     Active Substance: MEROPENEM
     Indication: PRODUCT USED FOR UNKNOWN INDICATION
     Dosage: 3 G, QD (3 G, QD/ 300 ML)
     Route: 042
  26. VANCOMYCIN [Suspect]
     Active Substance: VANCOMYCIN
     Indication: CLOSTRIDIUM DIFFICILE INFECTION
     Dosage: 1.5 G, QD
     Route: 048
     Dates: start: 20181027
  27. LEVONOR [Concomitant]
     Dosage: 3.2 MG/H, UNK
     Route: 042
     Dates: start: 20181118
  28. PYRALGIN [METAMIZOLE SODIUM] [Concomitant]
     Active Substance: METAMIZOLE SODIUM
     Dosage: 2.5 MG/ML, PRN (/100)
     Dates: start: 20181101
  29. AMANTIX [Concomitant]
     Indication: PRODUCT USED FOR UNKNOWN INDICATION
     Dosage: 500 ML, UNK (5 H INFUSION)
     Route: 042
  30. VANCOMYCIN [Suspect]
     Active Substance: VANCOMYCIN
     Dosage: 2 G, QD
     Route: 042
     Dates: start: 20181124, end: 20181125
  31. GENSULIN R [Suspect]
     Active Substance: INSULIN HUMAN
     Indication: DIABETES MELLITUS
     Dosage: UNK
     Route: 042
     Dates: start: 20181025, end: 20181115
  32. GENSULIN R [Suspect]
     Active Substance: INSULIN HUMAN
     Dosage: UNK
     Route: 042
     Dates: start: 20181116
  33. LEVONOR [Concomitant]
     Dosage: 2 MG/H, UNK
     Route: 042
     Dates: start: 20181119
  34. DEXAVEN [Concomitant]
     Active Substance: DEXAMETHASONE
     Indication: PRODUCT USED FOR UNKNOWN INDICATION
     Dosage: 8 MG, QD
     Route: 042
  35. VIREGYT-K [Concomitant]
     Indication: PRODUCT USED FOR UNKNOWN INDICATION
     Dosage: 50 MG, QD
     Route: 048
  36. BETALOC [Concomitant]
     Active Substance: METOPROLOL TARTRATE
     Indication: PRODUCT USED FOR UNKNOWN INDICATION
     Dosage: 20 MG, QD
     Route: 042
  37. PYRALGIN [METAMIZOLE SODIUM] [Concomitant]
     Active Substance: METAMIZOLE SODIUM
     Indication: PRODUCT USED FOR UNKNOWN INDICATION
     Dosage: 2.5 MG/ML, PRN (/100)
     Route: 042
     Dates: start: 20181015
  38. DIGOXIN. [Concomitant]
     Active Substance: DIGOXIN
     Indication: PRODUCT USED FOR UNKNOWN INDICATION
     Dosage: 1 G, UNK
     Route: 042

REACTIONS (31)
  - Liver injury [Fatal]
  - Hepatitis fulminant [Fatal]
  - Bradycardia [Fatal]
  - Central nervous system injury [Fatal]
  - Splenic injury [Fatal]
  - Blood pressure decreased [Fatal]
  - Thrombocytopenia [Fatal]
  - Acidosis [Fatal]
  - Loss of consciousness [Fatal]
  - Blood creatinine increased [Fatal]
  - Red blood cell count decreased [Fatal]
  - Tachyarrhythmia [Fatal]
  - Blood urea increased [Fatal]
  - Hypotonia [Fatal]
  - Drug level above therapeutic [Fatal]
  - Tachycardia [Fatal]
  - Anisocytosis [Fatal]
  - Blood bilirubin increased [Fatal]
  - Creatinine renal clearance decreased [Fatal]
  - Renal injury [Fatal]
  - Haemolytic anaemia [Fatal]
  - Hypochromasia [Fatal]
  - Macrocytosis [Fatal]
  - Hypoxia [Fatal]
  - Hypoglycaemia [Fatal]
  - Haemoglobin decreased [Fatal]
  - Petechiae [Fatal]
  - Oliguria [Fatal]
  - Hyperchloraemia [Fatal]
  - Hyperaemia [Fatal]
  - Hyperkalaemia [Fatal]

NARRATIVE: CASE EVENT DATE: 20181017
